FAERS Safety Report 24631820 (Version 3)
Quarter: 2024Q4

REPORT INFORMATION
  Report Type: Spontaneous
  Country: JP (occurrence: JP)
  Receive Date: 20241118
  Receipt Date: 20241126
  Transmission Date: 20250115
  Serious: Yes (Other)
  Sender: SANOFI AVENTIS
  Company Number: JP-MLMSERVICE-20241106-PI251219-00123-1

PATIENT
  Age: 77 Year
  Sex: Male

DRUGS (17)
  1. DOCETAXEL [Suspect]
     Active Substance: DOCETAXEL
     Indication: Mixed adenoneuroendocrine carcinoma
     Dosage: 70 MG/M2, QCY
  2. DOCETAXEL [Suspect]
     Active Substance: DOCETAXEL
     Indication: Neuroendocrine cancer of the prostate metastatic
     Dosage: 70 MG/M2, QCY
  3. DOCETAXEL [Suspect]
     Active Substance: DOCETAXEL
     Indication: Prostate cancer
  4. DOCETAXEL [Suspect]
     Active Substance: DOCETAXEL
     Indication: Metastases to lymph nodes
  5. DOCETAXEL [Suspect]
     Active Substance: DOCETAXEL
     Indication: Metastases to bone
  6. DAROLUTAMIDE [Suspect]
     Active Substance: DAROLUTAMIDE
     Indication: Mixed adenoneuroendocrine carcinoma
     Dosage: 1200 MG, QD
  7. DAROLUTAMIDE [Suspect]
     Active Substance: DAROLUTAMIDE
     Indication: Neuroendocrine cancer of the prostate metastatic
  8. DAROLUTAMIDE [Suspect]
     Active Substance: DAROLUTAMIDE
     Indication: Prostate cancer
  9. DAROLUTAMIDE [Suspect]
     Active Substance: DAROLUTAMIDE
     Indication: Metastases to lymph nodes
  10. DAROLUTAMIDE [Suspect]
     Active Substance: DAROLUTAMIDE
     Indication: Metastases to bone
  11. DEGARELIX [Concomitant]
     Active Substance: DEGARELIX
     Indication: Mixed adenoneuroendocrine carcinoma
     Dosage: 240 MG
  12. DEGARELIX [Concomitant]
     Active Substance: DEGARELIX
     Indication: Neuroendocrine cancer of the prostate metastatic
     Dosage: 280 MG, Q3M
     Route: 058
  13. DEGARELIX [Concomitant]
     Active Substance: DEGARELIX
     Indication: Prostate cancer
  14. DEGARELIX [Concomitant]
     Active Substance: DEGARELIX
     Indication: Metastases to lymph nodes
  15. DEGARELIX [Concomitant]
     Active Substance: DEGARELIX
     Indication: Metastases to bone
  16. DEGARELIX [Concomitant]
     Active Substance: DEGARELIX
     Indication: Androgen therapy
  17. GRANULOCYTE COLONY-STIMULATING FACTOR NOS [Concomitant]
     Active Substance: GRANULOCYTE COLONY-STIMULATING FACTOR NOS
     Indication: Neutropenia
     Dosage: FOR 2-4 DAYS PER COURSE OF DOCETAXEL

REACTIONS (1)
  - Hepatic failure [Recovered/Resolved]
